FAERS Safety Report 14836957 (Version 2)
Quarter: 2018Q4

REPORT INFORMATION
  Report Type: Spontaneous
  Country: FR (occurrence: FR)
  Receive Date: 20180502
  Receipt Date: 20181024
  Transmission Date: 20190204
  Serious: Yes (Other)
  Sender: FDA-Public Use
  Company Number: FR-MERCK KGAA-2046986

PATIENT
  Age: 40 Year
  Sex: Male
  Weight: 73 kg

DRUGS (1)
  1. EUTHYROX [Suspect]
     Active Substance: LEVOTHYROXINE SODIUM
     Indication: THYROIDECTOMY
     Route: 048
     Dates: start: 20170622

REACTIONS (39)
  - Myalgia [None]
  - Affect lability [Not Recovered/Not Resolved]
  - Weight decreased [None]
  - Partner stress [None]
  - Personal relationship issue [None]
  - Bradyphrenia [Not Recovered/Not Resolved]
  - Anxiety [None]
  - Dyspnoea [None]
  - Musculoskeletal discomfort [None]
  - Asthenia [Not Recovered/Not Resolved]
  - Mental fatigue [None]
  - Decreased activity [None]
  - Tri-iodothyronine decreased [None]
  - Muscle spasms [None]
  - Speech disorder [None]
  - Discomfort [None]
  - Impatience [None]
  - Palpitations [Not Recovered/Not Resolved]
  - Mood altered [None]
  - Aggression [None]
  - Fatigue [None]
  - Diarrhoea [None]
  - Tremor [None]
  - Hypothyroidism [None]
  - Irritability [None]
  - Emotional distress [Not Recovered/Not Resolved]
  - Insomnia [None]
  - Arthralgia [None]
  - Social avoidant behaviour [None]
  - Headache [Not Recovered/Not Resolved]
  - Chest pain [None]
  - Vertigo [None]
  - Exophthalmos [None]
  - Impaired work ability [None]
  - Dizziness [None]
  - General physical health deterioration [None]
  - Decreased interest [Not Recovered/Not Resolved]
  - Chills [Not Recovered/Not Resolved]
  - Mood swings [None]

NARRATIVE: CASE EVENT DATE: 20170702
